FAERS Safety Report 18414462 (Version 1)
Quarter: 2020Q4

REPORT INFORMATION
  Report Type: Spontaneous
  Country: US (occurrence: US)
  Receive Date: 20201022
  Receipt Date: 20201022
  Transmission Date: 20210114
  Serious: Yes (Life-Threatening, Hospitalization)
  Sender: FDA-Public Use
  Company Number: US-MYLANLABS-2020M1088543

PATIENT
  Age: 5 Month
  Sex: Male
  Weight: 7.1 kg

DRUGS (4)
  1. MILRINONE [Suspect]
     Active Substance: MILRINONE
     Indication: ATRIAL TACHYCARDIA
     Dosage: LOW DOSE
     Route: 065
  2. ESMOLOL [Suspect]
     Active Substance: ESMOLOL HYDROCHLORIDE
     Indication: ATRIAL TACHYCARDIA
     Dosage: 100 MICROGRAM/KILOGRAM, QMINUTE
  3. AMIODARONE [Concomitant]
     Active Substance: AMIODARONE
     Indication: ATRIAL TACHYCARDIA
     Dosage: 2.5 MILLIGRAM/KILOGRAM SINGLE BOLUS
     Route: 040
  4. AMIODARONE [Concomitant]
     Active Substance: AMIODARONE
     Dosage: 5 MICROGRAM/KILOGRAM, QMINUTE CONTINUOUS INFUSION
     Route: 042

REACTIONS (1)
  - Drug ineffective [Unknown]
